FAERS Safety Report 15658220 (Version 1)
Quarter: 2018Q4

REPORT INFORMATION
  Report Type: Spontaneous
  Country: US (occurrence: US)
  Receive Date: 20181126
  Receipt Date: 20181126
  Transmission Date: 20190205
  Serious: Yes (Other)
  Sender: FDA-Public Use
  Company Number: US-FRESENIUS KABI-FK201811891

PATIENT
  Age: 51 Year
  Sex: Female

DRUGS (2)
  1. CISPLATIN (MANUFACTURER UNKNOWN) [Suspect]
     Active Substance: CISPLATIN
     Indication: LUNG ADENOCARCINOMA
     Dosage: DAY 1, DAY 8, DAY 29 AND DAY 36
     Route: 065
  2. ETOPOSIDE (MANUFACTURER UNKNOWN) [Suspect]
     Active Substance: ETOPOSIDE
     Indication: LUNG ADENOCARCINOMA
     Dosage: DAY 1-5 AND DAY 29-33
     Route: 065

REACTIONS (1)
  - Superior vena cava syndrome [Recovered/Resolved]
